FAERS Safety Report 10224684 (Version 1)
Quarter: 2014Q2

REPORT INFORMATION
  Report Type: Spontaneous
  Country: AU (occurrence: AU)
  Receive Date: 20140609
  Receipt Date: 20140609
  Transmission Date: 20141212
  Serious: Yes (Other)
  Sender: FDA-Public Use
  Company Number: AU-MYLANLABS-2014S1012321

PATIENT
  Sex: Male

DRUGS (1)
  1. CELAPRAM [Suspect]
     Indication: PRODUCT USED FOR UNKNOWN INDICATION
     Dates: end: 20140526

REACTIONS (4)
  - Syncope [Not Recovered/Not Resolved]
  - Motor dysfunction [Not Recovered/Not Resolved]
  - Bruxism [Not Recovered/Not Resolved]
  - Decreased appetite [Not Recovered/Not Resolved]
